FAERS Safety Report 6088197-1 (Version None)
Quarter: 2009Q1

REPORT INFORMATION
  Report Type: 
  Country: None (occurrence: None)
  Receive Date: 20090224
  Receipt Date: 20090217
  Transmission Date: 20090719
  Serious: Yes (Other)
  Sender: FDA-Public Use
  Company Number: US-JNJFOC-20090204409

PATIENT
  Age: 15 Year
  Sex: Female
  Weight: 69.6 kg

DRUGS (1)
  1. INVEGA [Suspect]
     Indication: OPPOSITIONAL DEFIANT DISORDER
     Route: 048

REACTIONS (1)
  - CONVULSION [None]
